FAERS Safety Report 17115363 (Version 1)
Quarter: 2019Q4

REPORT INFORMATION
  Report Type: Spontaneous
  Country: CN (occurrence: CN)
  Receive Date: 20191205
  Receipt Date: 20191205
  Transmission Date: 20200122
  Serious: Yes (Other)
  Sender: FDA-Public Use
  Company Number: CN-PFIZER INC-2019520589

PATIENT
  Age: 5 Year
  Sex: Female
  Weight: 18 kg

DRUGS (3)
  1. SOLU-MEDROL [Suspect]
     Active Substance: METHYLPREDNISOLONE SODIUM SUCCINATE
     Indication: INFLAMMATION
     Dosage: 20 MG, 1X/DAY
     Route: 041
     Dates: start: 20191103, end: 20191103
  2. GLUCOSE INJECTION [Concomitant]
     Active Substance: DEXTROSE
     Dosage: 50 ML, 1X/DAY
     Route: 041
     Dates: start: 20191103, end: 20191103
  3. SOLU-MEDROL [Suspect]
     Active Substance: METHYLPREDNISOLONE SODIUM SUCCINATE
     Indication: ASTHMA

REACTIONS (1)
  - Abdominal pain [Recovered/Resolved]

NARRATIVE: CASE EVENT DATE: 20191103
